FAERS Safety Report 5838481-9 (Version None)
Quarter: 2008Q3

REPORT INFORMATION
  Report Type: 
  Country: None (occurrence: None)
  Receive Date: 20080808
  Receipt Date: 20080804
  Transmission Date: 20090109
  Serious: Yes (Other)
  Sender: FDA-Public Use
  Company Number: AT-BAYER-200823725GPV

PATIENT
  Age: 41 Year
  Sex: Male

DRUGS (1)
  1. ULTRAVIST 300 [Suspect]
     Indication: COMPUTERISED TOMOGRAM
     Dates: start: 20080723, end: 20080723

REACTIONS (3)
  - ANGINA PECTORIS [None]
  - FEELING HOT [None]
  - NAUSEA [None]
